FAERS Safety Report 7755009-7 (Version None)
Quarter: 2011Q3

REPORT INFORMATION
  Report Type: 
  Country: None (occurrence: None)
  Receive Date: 20110916
  Receipt Date: 20110903
  Transmission Date: 20111222
  Serious: Yes (Other)
  Sender: FDA-Public Use
  Company Number: NL-PAR PHARMACEUTICAL, INC-2011SCPR003225

PATIENT

DRUGS (7)
  1. PROPRANOLOL HYDROCHLORIDE [Suspect]
     Indication: HAEMANGIOMA
     Dosage: STARTING DOSAGE OF 1 MG/KG/DAY IN 2-3 DIVIDED DOSES
     Route: 065
  2. PROPRANOLOL HYDROCHLORIDE [Suspect]
     Dosage: DOSE REDUCED (UNSPECIFIED)
     Route: 065
  3. PREDNISONE [Suspect]
     Indication: HAEMANGIOMA
     Dosage: 4 MG/KG/DAY
     Route: 065
  4. PREDNISONE [Suspect]
     Dosage: 0.05 MG/KG/DAY
     Route: 065
  5. PREDNISONE [Suspect]
     Dosage: 0.1 MG/KG/DAY
     Route: 065
  6. PROPRANOLOL HYDROCHLORIDE [Suspect]
     Dosage: 2 MG/KG/DAY
     Route: 065
  7. PROPRANOLOL HYDROCHLORIDE [Suspect]
     Dosage: 2 MG/KG/DAY
     Route: 065

REACTIONS (2)
  - ADRENAL INSUFFICIENCY [None]
  - HYPOGLYCAEMIA [None]
